FAERS Safety Report 17170938 (Version 7)
Quarter: 2020Q4

REPORT INFORMATION
  Report Type: Report from Study
  Country: US (occurrence: US)
  Receive Date: 20191218
  Receipt Date: 20201111
  Transmission Date: 20210113
  Serious: No
  Sender: FDA-Public Use
  Company Number: US-DSJP-DSU-2019-148318

PATIENT
  Sex: Female

DRUGS (5)
  1. PEXIDARTINIB [Suspect]
     Active Substance: PEXIDARTINIB
     Dosage: 600 MG QD
     Route: 048
     Dates: start: 2020
  2. PEXIDARTINIB [Suspect]
     Active Substance: PEXIDARTINIB
     Indication: SYNOVITIS
     Dosage: 800 MG QD
     Route: 048
     Dates: start: 20191125, end: 2020
  3. PEXIDARTINIB [Suspect]
     Active Substance: PEXIDARTINIB
     Indication: NEOPLASM
     Dosage: 800 MG QD
     Route: 048
     Dates: start: 201910, end: 2020
  4. PEXIDARTINIB [Suspect]
     Active Substance: PEXIDARTINIB
     Dosage: 200MG QAM 400MG QPM
     Route: 048
     Dates: start: 20191125
  5. PEXIDARTINIB [Suspect]
     Active Substance: PEXIDARTINIB
     Dosage: 200MG QAM 400MG QPM
     Route: 048
     Dates: start: 20191125, end: 2020

REACTIONS (7)
  - Dizziness [Unknown]
  - Fatigue [Unknown]
  - Diarrhoea [Unknown]
  - Product dose omission issue [Not Recovered/Not Resolved]
  - Hepatic enzyme increased [Unknown]
  - Swelling face [Unknown]
  - Hypoaesthesia [Unknown]

NARRATIVE: CASE EVENT DATE: 2019
